FAERS Safety Report 11372977 (Version 1)
Quarter: 2015Q3

REPORT INFORMATION
  Report Type: Spontaneous
  Country: US (occurrence: US)
  Receive Date: 20150811
  Receipt Date: 20150811
  Transmission Date: 20151125
  Serious: No
  Sender: FDA-Public Use
  Company Number: US-ELI_LILLY_AND_COMPANY-US201203004398

PATIENT
  Age: 30 Year
  Sex: Female
  Weight: 45.35 kg

DRUGS (3)
  1. TYVASO [Concomitant]
     Active Substance: TREPROSTINIL
     Indication: PULMONARY ARTERIAL HYPERTENSION
     Dosage: UNK
     Dates: start: 20120212
  2. ADCIRCA [Suspect]
     Active Substance: TADALAFIL
     Dosage: UNK, UNKNOWN
  3. DIURETICS [Concomitant]
     Active Substance: UNSPECIFIED INGREDIENT

REACTIONS (3)
  - Cough [Not Recovered/Not Resolved]
  - Dyspnoea [Not Recovered/Not Resolved]
  - Back pain [Not Recovered/Not Resolved]
